FAERS Safety Report 17902563 (Version 1)
Quarter: 2020Q2

REPORT INFORMATION
  Report Type: Spontaneous
  Country: US (occurrence: US)
  Receive Date: 20200617
  Receipt Date: 20200617
  Transmission Date: 20200714
  Serious: Yes (Hospitalization)
  Sender: FDA-Public Use
  Company Number: US-PCCINC-2020-PEL-000275

PATIENT

DRUGS (2)
  1. BACLOFEN, UNKNOWN [Suspect]
     Active Substance: BACLOFEN
     Indication: PARAPLEGIA
     Dosage: UNK
     Route: 037
  2. BACLOFEN, UNKNOWN [Suspect]
     Active Substance: BACLOFEN
     Dosage: 50 MICROGRAM BOLUS
     Route: 037

REACTIONS (8)
  - Pyrexia [Unknown]
  - Pruritus [Unknown]
  - Hypertonia [Unknown]
  - Device defective [Unknown]
  - Device connection issue [Unknown]
  - Implant site swelling [Unknown]
  - Muscle spasticity [Unknown]
  - Pain [Unknown]
